FAERS Safety Report 9466261 (Version 1)
Quarter: 2013Q3

REPORT INFORMATION
  Report Type: Spontaneous
  Country: BR (occurrence: BR)
  Receive Date: 20130820
  Receipt Date: 20130820
  Transmission Date: 20140515
  Serious: Yes (Other)
  Sender: FDA-Public Use
  Company Number: BR-PFIZER INC-2013236760

PATIENT
  Age: 58 Year
  Sex: Male

DRUGS (7)
  1. OLMETEC HCT [Suspect]
     Indication: HYPERTENSION
     Dosage: [OLMESARTAN MEDOXOMIL 40 MG]/[HYDROCHLOROTHIAZIDE 12.5 MG], ONCE DAILY
     Route: 048
     Dates: end: 201304
  2. NORVASC [Suspect]
     Indication: HYPERTENSION
     Dosage: 5 MG, 1X/DAY (AT NIGHT)
     Route: 048
     Dates: end: 201304
  3. CORUS H [Suspect]
     Indication: HYPERTENSION
     Dosage: 2 TABLETS OF 50 MG IN THE MORNING AND 1 TABLET OF 50 MG AT NIGHT
     Dates: start: 201304
  4. DUOMO [Concomitant]
     Dosage: UNK
     Dates: start: 2010
  5. GLIFAGE [Concomitant]
  6. TREZOR [Concomitant]
  7. AVODART [Concomitant]
     Dosage: UNK
     Dates: start: 201306

REACTIONS (3)
  - Diabetes mellitus [Unknown]
  - Prostatomegaly [Unknown]
  - Drug ineffective [Unknown]
